FAERS Safety Report 7236927-5 (Version None)
Quarter: 2011Q1

REPORT INFORMATION
  Report Type: 
  Country: None (occurrence: None)
  Receive Date: 20110121
  Receipt Date: 20110113
  Transmission Date: 20110831
  Serious: Yes (Hospitalization)
  Sender: FDA-Public Use
  Company Number: US-ASTRAZENECA-2011SE02448

PATIENT
  Age: 24443 Day
  Sex: Male
  Weight: 111.1 kg

DRUGS (11)
  1. SEROQUEL [Suspect]
     Indication: BIPOLAR DISORDER
     Dosage: 25 MG TO 100 MG
     Route: 048
     Dates: start: 20070501, end: 20100501
  2. IMDUR [Concomitant]
     Dates: start: 20090728
  3. ZETIA [Concomitant]
     Dates: start: 20090728
  4. GLUCOVANCE [Concomitant]
     Dosage: 5/500 MG ONE IN THE MORNING, ONE  AT LUNCH TIME AND 2 WITH P.M. MEALS
     Dates: start: 20070501
  5. FLOMAX [Concomitant]
     Dates: start: 20090728
  6. NITROGLYCERIN [Concomitant]
     Dosage: 0.4 MG TO 0.5 MG PRN
     Dates: start: 20070501
  7. HYDROCHLOROTHIAZIDE [Concomitant]
     Dates: start: 20070501
  8. PREDNISONE [Concomitant]
     Dates: start: 20070501
  9. LISINOPRIL [Concomitant]
     Dosage: 2.5 MG TO 5 MG DAILY
     Dates: start: 20070501
  10. PREVACID [Concomitant]
     Dates: start: 20070501
  11. XANAX [Concomitant]
     Dates: start: 20070501

REACTIONS (12)
  - DRUG INTOLERANCE [None]
  - ADVERSE DRUG REACTION [None]
  - HYPOGLYCAEMIA [None]
  - HYPERTENSION [None]
  - PRESYNCOPE [None]
  - CORONARY ARTERY DISEASE [None]
  - BLOOD GLUCOSE INCREASED [None]
  - DYSLIPIDAEMIA [None]
  - PAIN IN EXTREMITY [None]
  - WEIGHT INCREASED [None]
  - DIABETES MELLITUS INADEQUATE CONTROL [None]
  - HYPERLIPIDAEMIA [None]
